FAERS Safety Report 5930018-9 (Version None)
Quarter: 2008Q4

REPORT INFORMATION
  Report Type: 
  Country: None (occurrence: None)
  Receive Date: 20081021
  Receipt Date: 20081015
  Transmission Date: 20090506
  Serious: Yes (Hospitalization)
  Sender: FDA-Public Use
  Company Number: JPI-P-005069

PATIENT
  Age: 78 Year
  Sex: Male

DRUGS (9)
  1. XYREM [Suspect]
     Indication: INSOMNIA
     Dosage: 4.5 GM (2.25 GM, 2 IN 1 D) ORAL 6.5 GM (3.25 GM, 2 IN 1 D), ORAL
     Route: 048
     Dates: start: 20080926, end: 20081007
  2. XYREM [Suspect]
     Indication: INSOMNIA
     Dosage: 4.5 GM (2.25 GM, 2 IN 1 D) ORAL 6.5 GM (3.25 GM, 2 IN 1 D), ORAL
     Route: 048
     Dates: start: 20081008, end: 20081010
  3. WARFARIN SODIUM [Concomitant]
  4. SIMVASTATIN [Concomitant]
  5. FINASTERIDE [Concomitant]
  6. DOXAZOSIN (DOXAZOSIN) [Concomitant]
  7. VERAPAMIL [Concomitant]
  8. RISEDRONATE SODIUM [Concomitant]
  9. MILK OF MAGNESIA TAB [Concomitant]

REACTIONS (5)
  - ARRHYTHMIA [None]
  - DISORIENTATION [None]
  - FEELING ABNORMAL [None]
  - HEART RATE INCREASED [None]
  - HEART RATE IRREGULAR [None]
